APPROVED DRUG PRODUCT: CUVRIOR
Active Ingredient: TRIENTINE TETRAHYDROCHLORIDE
Strength: 300MG
Dosage Form/Route: TABLET;ORAL
Application: N215760 | Product #001
Applicant: ORPHALAN SA
Approved: Apr 28, 2022 | RLD: Yes | RS: Yes | Type: RX

PATENTS:
Patent 12358862 | Expires: May 3, 2039
Patent 12358861 | Expires: May 3, 2039
Patent 11072577 | Expires: May 3, 2039
Patent 10988436 | Expires: May 3, 2039

EXCLUSIVITY:
Code: ODE-401 | Date: Apr 28, 2029